FAERS Safety Report 24065813 (Version 1)
Quarter: 2024Q3

REPORT INFORMATION
  Report Type: Spontaneous
  Country: FR (occurrence: FR)
  Receive Date: 20240709
  Receipt Date: 20240709
  Transmission Date: 20241016
  Serious: Yes (Other)
  Sender: PFIZER
  Company Number: FR-PFIZER INC-2021SGN03120

PATIENT

DRUGS (2)
  1. TUKYSA [Suspect]
     Active Substance: TUCATINIB
     Indication: Product used for unknown indication
  2. TRASTUZUMAB [Suspect]
     Active Substance: TRASTUZUMAB

REACTIONS (1)
  - Cardiotoxicity [Unknown]
